FAERS Safety Report 10255984 (Version 1)
Quarter: 2014Q2

REPORT INFORMATION
  Report Type: Spontaneous
  Country: GB (occurrence: GB)
  Receive Date: 20140624
  Receipt Date: 20140624
  Transmission Date: 20141212
  Serious: Yes (Life-Threatening)
  Sender: FDA-Public Use
  Company Number: GB-PFIZER INC-2014169525

PATIENT
  Age: 63 Year
  Sex: Female
  Weight: 97.2 kg

DRUGS (14)
  1. TAZOCIN [Suspect]
     Indication: LOWER RESPIRATORY TRACT INFECTION
     Dosage: 4.5 G, BOLUS
     Route: 042
     Dates: start: 20140610, end: 20140610
  2. ALENDRONATE [Concomitant]
     Dosage: UNK
  3. BENDROFLUMETHIAZIDE [Concomitant]
     Dosage: UNK
  4. CALCEOS [Concomitant]
     Dosage: UNK
  5. GABAPENTIN [Concomitant]
     Dosage: UNK
  6. HARTMANN^S SOLUTION [Concomitant]
     Dosage: UNK
  7. MORPHINE [Concomitant]
     Dosage: UNK
  8. OXYCONTIN [Concomitant]
     Dosage: UNK
  9. PARACETAMOL [Concomitant]
     Dosage: UNK
  10. PERINDOPRIL [Concomitant]
     Dosage: UNK
  11. SALBUTAMOL [Concomitant]
     Dosage: UNK
  12. TIOTROPIUM [Concomitant]
     Dosage: UNK
  13. ACTRAPID [Concomitant]
     Dosage: UNK
  14. SERETIDE [Concomitant]
     Dosage: UNK

REACTIONS (2)
  - Bradycardia [Recovered/Resolved]
  - Eye movement disorder [Unknown]
